FAERS Safety Report 6906254-1 (Version None)
Quarter: 2010Q3

REPORT INFORMATION
  Report Type: 
  Country: None (occurrence: None)
  Receive Date: 20100802
  Receipt Date: 20100716
  Transmission Date: 20110219
  Serious: Yes (Death, Hospitalization)
  Sender: FDA-Public Use
  Company Number: 2010000543

PATIENT
  Age: 73 Year
  Sex: Male
  Weight: 58.8 kg

DRUGS (13)
  1. ERLOTINIB HYDROCHLORIDE [Suspect]
     Indication: LUNG ADENOCARCINOMA
     Dosage: (150 MG, QD), ORAL
     Route: 048
     Dates: start: 20090306, end: 20090719
  2. RULID (ROXITHROMYCIN) [Suspect]
     Indication: PRODUCT USED FOR UNKNOWN INDICATION
     Dosage: ORAL
     Route: 048
     Dates: end: 20090318
  3. NAIXAN (NAPROXEN SODIUM) [Suspect]
     Indication: PRODUCT USED FOR UNKNOWN INDICATION
     Dosage: (300 MG, QD), ORAL
     Route: 048
     Dates: start: 20090501, end: 20090701
  4. NATEGLINIDE [Concomitant]
  5. AZELASTINE HCL [Concomitant]
  6. OLMESARTAN MEDOXOMIL [Concomitant]
  7. INDAPAMIDE [Concomitant]
  8. LIVALO [Concomitant]
  9. FERROMIA (FERROUS CITRATE) [Concomitant]
  10. ADONA (CARBAZOCHROME SODIUM SULFONATE) [Concomitant]
  11. TRANSAMIN (TRANEXAMIC ACID) [Concomitant]
  12. CINAL (CINAL) [Concomitant]
  13. LOSARTAN POTASSIUM AND HYDROCHLOROTHIAZIDE [Concomitant]

REACTIONS (8)
  - DUODENAL PERFORATION [None]
  - EOSINOPHIL COUNT INCREASED [None]
  - GASTRITIS ATROPHIC [None]
  - HAEMATEMESIS [None]
  - HAEMOPTYSIS [None]
  - LUNG ADENOCARCINOMA [None]
  - MALIGNANT NEOPLASM PROGRESSION [None]
  - PNEUMONIA [None]
